FAERS Safety Report 18164602 (Version 1)
Quarter: 2020Q3

REPORT INFORMATION
  Report Type: Report from Study
  Country: CO (occurrence: CO)
  Receive Date: 20200818
  Receipt Date: 20200818
  Transmission Date: 20201103
  Serious: Yes (Hospitalization)
  Sender: FDA-Public Use
  Company Number: NVSC2020CO216905

PATIENT
  Age: 40 Year
  Sex: Female
  Weight: 56 kg

DRUGS (3)
  1. GILENYA [Suspect]
     Active Substance: FINGOLIMOD HYDROCHLORIDE
     Indication: MULTIPLE SCLEROSIS
     Dosage: 0.5 MG, QD
     Route: 048
     Dates: start: 20150309
  2. GILENYA [Suspect]
     Active Substance: FINGOLIMOD HYDROCHLORIDE
     Dosage: 0.5 MG, QOD, EVERY OTHER DAY
     Route: 048
     Dates: start: 20200801
  3. VIT D [Concomitant]
     Active Substance: VITAMIN D NOS
     Indication: PRODUCT USED FOR UNKNOWN INDICATION
     Dosage: 50 UG, QD, SINCE 3 WEEKS AGO
     Route: 048

REACTIONS (6)
  - Dizziness [Unknown]
  - Drug ineffective [Unknown]
  - Multiple sclerosis [Unknown]
  - Relapsing multiple sclerosis [Recovered/Resolved]
  - Prescribed underdose [Unknown]
  - Hypoaesthesia [Unknown]

NARRATIVE: CASE EVENT DATE: 201904
